FAERS Safety Report 7005383-4 (Version None)
Quarter: 2010Q3

REPORT INFORMATION
  Report Type: 
  Country: None (occurrence: None)
  Receive Date: 20100921
  Receipt Date: 20100910
  Transmission Date: 20110219
  Serious: Yes (Other)
  Sender: FDA-Public Use
  Company Number: GXKR2010FR06204

PATIENT
  Sex: Male
  Weight: 39 kg

DRUGS (3)
  1. SOMATROPIN G-SROP+LIQ [Suspect]
     Indication: SMALL FOR DATES BABY
     Dosage: 1.3 MG, QD
     Route: 058
     Dates: start: 20070827, end: 20090816
  2. SOMATROPIN G-SROP+LIQ [Suspect]
     Dosage: UNK
     Route: 058
     Dates: start: 20100126, end: 20100607
  3. LEVOTHYROXINE SODIUM [Concomitant]
     Indication: HYPOTHYROIDISM
     Dosage: 75 UG, QD
     Route: 048

REACTIONS (5)
  - DISEASE PROGRESSION [None]
  - HEART INJURY [None]
  - HEPATOMEGALY [None]
  - OEDEMA [None]
  - VENOUS PRESSURE JUGULAR [None]
